FAERS Safety Report 13267515 (Version 1)
Quarter: 2017Q1

REPORT INFORMATION
  Report Type: Spontaneous
  Country: None (occurrence: US)
  Receive Date: 20170223
  Receipt Date: 20170223
  Transmission Date: 20170428
  Serious: No
  Sender: FDA-Public Use
  Company Number: None

PATIENT
  Age: 50 Year
  Sex: Male

DRUGS (1)
  1. TEMOZOLOMIDE 100MG SANDOZ [Suspect]
     Active Substance: TEMOZOLOMIDE
     Indication: NEOPLASM MALIGNANT
     Dosage: 300MG DAILY ON DAYS 1 THROUGH 5 EVERY 28 DAY CYCLE ORAL
     Route: 048
     Dates: start: 20161110

REACTIONS (3)
  - Confusional state [None]
  - Amnesia [None]
  - Fatigue [None]

NARRATIVE: CASE EVENT DATE: 20170220
